FAERS Safety Report 4754849-6 (Version None)
Quarter: 2005Q3

REPORT INFORMATION
  Report Type: 
  Country: None (occurrence: None)
  Receive Date: 20050829
  Receipt Date: 20050823
  Transmission Date: 20060218
  Serious: Yes (Hospitalization, Other)
  Sender: FDA-Public Use
  Company Number: US-ABBOTT-05P-163-0309082-00

PATIENT
  Sex: Female
  Weight: 114 kg

DRUGS (9)
  1. HUMIRA [Suspect]
     Indication: RHEUMATOID ARTHRITIS
     Route: 058
     Dates: start: 20050401, end: 20050601
  2. SERETIDE MITE [Concomitant]
     Indication: INTERSTITIAL LUNG DISEASE
     Route: 048
     Dates: start: 20040101
  3. OXYGEN [Concomitant]
     Indication: INTERSTITIAL LUNG DISEASE
     Route: 045
     Dates: start: 20040101
  4. XOPENEX [Concomitant]
     Indication: INTERSTITIAL LUNG DISEASE
     Dosage: NEBULIZER
     Dates: start: 20040101
  5. ZOCOR [Concomitant]
     Indication: BLOOD CHOLESTEROL INCREASED
     Route: 048
  6. GLIBENCLAMIDE [Concomitant]
     Indication: DIABETES MELLITUS
     Route: 048
  7. AMLODIPINE BESILATE [Concomitant]
     Indication: BLOOD PRESSURE INCREASED
     Route: 048
  8. ATENOLOL [Concomitant]
     Indication: BLOOD PRESSURE INCREASED
     Route: 048
  9. METHOTREXATE [Concomitant]
     Indication: RHEUMATOID ARTHRITIS
     Route: 048

REACTIONS (6)
  - ASTHENIA [None]
  - BLOOD PRESSURE DECREASED [None]
  - ESCHERICHIA INFECTION [None]
  - INTERSTITIAL LUNG DISEASE [None]
  - PAIN IN EXTREMITY [None]
  - URINARY TRACT INFECTION [None]
